FAERS Safety Report 20892025 (Version 6)
Quarter: 2022Q3

REPORT INFORMATION
  Report Type: Report from Study
  Country: US (occurrence: US)
  Receive Date: 20220530
  Receipt Date: 20220805
  Transmission Date: 20221027
  Serious: Yes (Hospitalization, Other)
  Sender: FDA-Public Use
  Company Number: US-NOVARTISPH-NVSC2022US120718

PATIENT
  Sex: Male

DRUGS (2)
  1. ENTRESTO [Suspect]
     Active Substance: SACUBITRIL\VALSARTAN
     Indication: Product used for unknown indication
     Dosage: 1 DOSAGE FORM, BID (24/26 MG)
     Route: 048
     Dates: start: 202110
  2. ENTRESTO [Suspect]
     Active Substance: SACUBITRIL\VALSARTAN
     Dosage: 1 DOSAGE FORM, BID (49/51 MG)
     Route: 048

REACTIONS (19)
  - Fluid retention [Unknown]
  - Pericardial effusion [Unknown]
  - Pulmonary oedema [Unknown]
  - Illness [Unknown]
  - Immunisation reaction [Unknown]
  - Pyrexia [Unknown]
  - Chills [Unknown]
  - Ejection fraction decreased [Recovering/Resolving]
  - Pain in extremity [Unknown]
  - Hyperhidrosis [Unknown]
  - Peripheral swelling [Unknown]
  - Dyspnoea [Unknown]
  - Chest discomfort [Unknown]
  - Renal disorder [Unknown]
  - Abdominal pain lower [Recovering/Resolving]
  - Muscle spasms [Not Recovered/Not Resolved]
  - Blood creatinine increased [Unknown]
  - Blood urea increased [Unknown]
  - Cough [Not Recovered/Not Resolved]
